FAERS Safety Report 7659870-6 (Version None)
Quarter: 2011Q3

REPORT INFORMATION
  Report Type: 
  Country: None (occurrence: None)
  Receive Date: 20110805
  Receipt Date: 20110204
  Transmission Date: 20111222
  Serious: No
  Sender: FDA-Public Use
  Company Number: US-ABBOTT-11P-163-0704092-00

PATIENT
  Sex: Female
  Weight: 108.96 kg

DRUGS (6)
  1. DIVALPROEX SODIUM [Suspect]
     Indication: MIGRAINE
     Dates: start: 20100901
  2. KLOR-CON [Concomitant]
     Indication: MINERAL SUPPLEMENTATION
  3. ESTRADIOL [Concomitant]
     Indication: MIGRAINE
  4. CITALOPRAM HYDROBROMIDE [Concomitant]
     Indication: DEPRESSION
  5. METFORMIN HCL [Concomitant]
     Indication: DIABETES MELLITUS
  6. DEPAKOTE ER [Suspect]
     Indication: MIGRAINE
     Dates: end: 20100901

REACTIONS (2)
  - OEDEMA PERIPHERAL [None]
  - VITAMIN D DEFICIENCY [None]
